FAERS Safety Report 21546078 (Version 1)
Quarter: 2022Q4

REPORT INFORMATION
  Report Type: Report from Study
  Country: US (occurrence: US)
  Receive Date: 20221103
  Receipt Date: 20221103
  Transmission Date: 20230112
  Serious: Yes (Hospitalization, Other)
  Sender: FDA-Public Use
  Company Number: US-GILEAD-2022-0597973

PATIENT
  Sex: Female

DRUGS (3)
  1. AZTREONAM LYSINE [Suspect]
     Active Substance: AZTREONAM LYSINE
     Indication: Product used for unknown indication
     Dosage: 75 MG, TID REPEATEDLY CYCLE 28 DAYS ON AND 28 DAYS OFF
     Route: 055
     Dates: start: 201912
  2. JAKAFI [Concomitant]
     Active Substance: RUXOLITINIB
  3. TOBRAMYCIN SULFATE [Concomitant]
     Active Substance: TOBRAMYCIN SULFATE

REACTIONS (3)
  - Anaesthesia [Unknown]
  - Illness [Unknown]
  - Cough [Not Recovered/Not Resolved]
